FAERS Safety Report 13330236 (Version 1)
Quarter: 2017Q1

REPORT INFORMATION
  Report Type: Spontaneous
  Country: US (occurrence: US)
  Receive Date: 20170314
  Receipt Date: 20170314
  Transmission Date: 20170428
  Serious: Yes (Hospitalization)
  Sender: FDA-Public Use
  Company Number: US-ROCHE-1905542

PATIENT
  Sex: Female

DRUGS (1)
  1. XOLAIR [Suspect]
     Active Substance: OMALIZUMAB
     Indication: ASTHMA
     Dosage: ONGOING;UNKNOWN
     Route: 065
     Dates: start: 20160718

REACTIONS (2)
  - Immune thrombocytopenic purpura [Unknown]
  - Epistaxis [Unknown]
